FAERS Safety Report 23317796 (Version 2)
Quarter: 2023Q4

REPORT INFORMATION
  Report Type: Spontaneous
  Country: GB (occurrence: GB)
  Receive Date: 20231219
  Receipt Date: 20231222
  Transmission Date: 20240110
  Serious: Yes (Other)
  Sender: FDA-Public Use
  Company Number: GB-ABBVIE-5546405

PATIENT
  Sex: Female
  Weight: 39 kg

DRUGS (1)
  1. NORVIR [Suspect]
     Active Substance: RITONAVIR
     Indication: HIV infection
     Dosage: 100 MG
     Route: 048

REACTIONS (9)
  - Apparent death [Unknown]
  - Weight decreased [Unknown]
  - Bone disorder [Unknown]
  - Malaise [Unknown]
  - Nausea [Unknown]
  - Bedridden [Unknown]
  - Malnutrition [Unknown]
  - Skin ulcer [Unknown]
  - Hyperhidrosis [Unknown]
